FAERS Safety Report 9979288 (Version 2)
Quarter: 2014Q2

REPORT INFORMATION
  Report Type: Report from Study
  Country: US (occurrence: US)
  Receive Date: 20140306
  Receipt Date: 20140404
  Transmission Date: 20141212
  Serious: Yes (Hospitalization, Other)
  Sender: FDA-Public Use
  Company Number: US-ABBVIE-13P-163-1169460-00

PATIENT
  Age: 51 Year
  Sex: Female

DRUGS (3)
  1. HUMIRA [Suspect]
     Indication: CROHN^S DISEASE
     Dates: start: 20130823, end: 20131001
  2. METHOTREXATE [Concomitant]
     Indication: CROHN^S DISEASE
     Route: 058
  3. FOLIC ACID [Concomitant]
     Indication: CROHN^S DISEASE

REACTIONS (5)
  - Polyarthritis [Unknown]
  - Back pain [Recovering/Resolving]
  - Arthralgia [Unknown]
  - Iritis [Unknown]
  - Musculoskeletal pain [Unknown]
